FAERS Safety Report 4359528-5 (Version None)
Quarter: 2004Q2

REPORT INFORMATION
  Report Type: 
  Country: None (occurrence: None)
  Receive Date: 20040514
  Receipt Date: 20040514
  Transmission Date: 20050107
  Serious: Yes (Hospitalization)
  Sender: FDA-Public Use
  Company Number: None

PATIENT
  Age: 64 Year
  Sex: Male

DRUGS (4)
  1. TERAZOSIN HCL [Suspect]
     Indication: BENIGN PROSTATIC HYPERPLASIA
     Dosage: 5 ML QHS
     Dates: start: 20021101
  2. TRAMADOL HCL [Concomitant]
  3. IBUPROFEN [Concomitant]
  4. VIAGRA [Concomitant]

REACTIONS (1)
  - SYNCOPE [None]
